FAERS Safety Report 9504564 (Version 1)
Quarter: 2013Q3

REPORT INFORMATION
  Report Type: Spontaneous
  Country: GR (occurrence: GR)
  Receive Date: 20130906
  Receipt Date: 20130906
  Transmission Date: 20140515
  Serious: Yes (Hospitalization)
  Sender: FDA-Public Use
  Company Number: GR-B.I. PHARMACEUTICALS,INC./RIDGEFIELD-2013-BI-27456GB

PATIENT
  Age: 83 Year
  Sex: Female

DRUGS (6)
  1. PRADAXA [Suspect]
     Indication: ATRIAL FIBRILLATION
     Dosage: 220 MG
     Route: 048
     Dates: start: 201201
  2. LOGIMAX / METOPROLOL+FELODIPINE [Concomitant]
     Indication: CARDIAC DISORDER
  3. LOGIMAX / METOPROLOL+FELODIPINE [Concomitant]
     Indication: HYPERTENSION
  4. LEPUR / SIMVASTATIN [Concomitant]
     Indication: HYPERLIPIDAEMIA
  5. CONCOR / BISOPROLOL FUMARATE [Concomitant]
     Indication: HYPERTENSION
  6. DIGOXIN / DIGOXIN [Concomitant]
     Indication: ARRHYTHMIA

REACTIONS (6)
  - Fatigue [Recovered/Resolved]
  - Arrhythmia [Recovered/Resolved]
  - Tachycardia [Recovered/Resolved]
  - Fatigue [Recovered/Resolved]
  - Arrhythmia [Recovered/Resolved]
  - Tachycardia [Recovered/Resolved]
